FAERS Safety Report 8511286 (Version 4)
Quarter: 2015Q1

REPORT INFORMATION
  Report Type: Spontaneous
  Country: US (occurrence: US)
  Receive Date: 20120413
  Receipt Date: 20150120
  Transmission Date: 20150721
  Serious: No
  Sender: FDA-Public Use
  Company Number: US-ASTRAZENECA-2011SE72865

PATIENT
  Age: 22 Year
  Sex: Male
  Weight: 90.7 kg

DRUGS (7)
  1. PROLIXIN PHENOTHIAZINE [Concomitant]
     Indication: ANTIPSYCHOTIC DRUG LEVEL THERAPEUTIC
  2. KLONIPIN [Concomitant]
     Active Substance: CLONAZEPAM
     Indication: ANTIPSYCHOTIC DRUG LEVEL THERAPEUTIC
  3. ZYPREXA [Concomitant]
     Active Substance: OLANZAPINE
     Indication: ANTIPSYCHOTIC DRUG LEVEL THERAPEUTIC
  4. LITHIUM CARBONATE ER [Concomitant]
     Active Substance: LITHIUM CARBONATE
     Indication: AFFECTIVE DISORDER
  5. NEXIUM [Suspect]
     Active Substance: ESOMEPRAZOLE MAGNESIUM
     Indication: GASTROOESOPHAGEAL REFLUX DISEASE
     Route: 048
     Dates: start: 2014
  6. NEXIUM [Suspect]
     Active Substance: ESOMEPRAZOLE MAGNESIUM
     Indication: GASTROOESOPHAGEAL REFLUX DISEASE
     Route: 048
     Dates: start: 2013, end: 2014
  7. BENZODIAZEPINE [Concomitant]
     Active Substance: BENZODIAZEPINE
     Indication: ANTIPSYCHOTIC DRUG LEVEL THERAPEUTIC

REACTIONS (15)
  - Drug dose omission [Unknown]
  - Dysphagia [Unknown]
  - Off label use [Not Recovered/Not Resolved]
  - Cow^s milk intolerance [Unknown]
  - Schizophrenia [Unknown]
  - Feeling abnormal [Unknown]
  - Gastrooesophageal reflux disease [Unknown]
  - Throat irritation [Unknown]
  - Vomiting [Unknown]
  - Retching [Unknown]
  - Pain [Unknown]
  - Dyspepsia [Unknown]
  - Weight increased [Unknown]
  - Bipolar disorder [Unknown]
  - Malaise [Unknown]

NARRATIVE: CASE EVENT DATE: 2014
